FAERS Safety Report 22727036 (Version 6)
Quarter: 2024Q2

REPORT INFORMATION
  Report Type: Report from Study
  Country: CA (occurrence: CA)
  Receive Date: 20230720
  Receipt Date: 20240422
  Transmission Date: 20240716
  Serious: Yes (Hospitalization, Other)
  Sender: FDA-Public Use
  Company Number: CA-JNJFOC-20211139644

PATIENT
  Age: 59 Year
  Sex: Female
  Weight: 77.2 kg

DRUGS (5)
  1. REMICADE [Suspect]
     Active Substance: INFLIXIMAB
     Indication: Crohn^s disease
     Dosage: EXPIRY DATE: 01-JUL-2024?BATCH NUMBER: MAM77013 AND EXPIRY: 01-DEC-2023
     Route: 041
     Dates: start: 20150205
  2. REMICADE [Suspect]
     Active Substance: INFLIXIMAB
     Route: 041
     Dates: start: 20150205
  3. REMICADE [Suspect]
     Active Substance: INFLIXIMAB
     Dosage: EXPIRY DATE:  09/2026
     Route: 041
     Dates: start: 20150205
  4. REMICADE [Suspect]
     Active Substance: INFLIXIMAB
     Route: 041
     Dates: start: 20150205
  5. BUDESONIDE [Concomitant]
     Active Substance: BUDESONIDE
     Indication: Product used for unknown indication
     Route: 045
     Dates: start: 20211209

REACTIONS (6)
  - Kidney infection [Unknown]
  - Nephrolithiasis [Not Recovered/Not Resolved]
  - Urinary tract infection [Unknown]
  - Herpes zoster [Unknown]
  - Rosacea [Unknown]
  - Off label use [Unknown]

NARRATIVE: CASE EVENT DATE: 20150205
